FAERS Safety Report 23286449 (Version 2)
Quarter: 2023Q4

REPORT INFORMATION
  Report Type: Spontaneous
  Country: DE (occurrence: DE)
  Receive Date: 20231212
  Receipt Date: 20231214
  Transmission Date: 20240110
  Serious: Yes (Other)
  Sender: FDA-Public Use
  Company Number: DE-CELLTRION HEALTHCARE HUNGARY KFT-2023DE022564

PATIENT

DRUGS (1)
  1. RITUXIMAB [Suspect]
     Active Substance: RITUXIMAB
     Indication: B precursor type acute leukaemia
     Dosage: 375 MG/M2, CYCLIC (9 DOSES)
     Route: 064

REACTIONS (5)
  - Maternal exposure during pregnancy [Unknown]
  - Premature baby [Unknown]
  - B-cell aplasia [Unknown]
  - Blood immunoglobulin G decreased [Unknown]
  - Off label use [Unknown]
